FAERS Safety Report 20817703 (Version 1)
Quarter: 2022Q2

REPORT INFORMATION
  Report Type: Spontaneous
  Country: US (occurrence: US)
  Receive Date: 20220512
  Receipt Date: 20220512
  Transmission Date: 20220721
  Serious: No
  Sender: FDA-Public Use
  Company Number: CID000000000024223

PATIENT
  Age: 58 Year
  Sex: Female

DRUGS (1)
  1. TRAZODONE HYDROCHLORIDE [Suspect]
     Active Substance: TRAZODONE HYDROCHLORIDE
     Indication: Sleep disorder
     Dosage: FORM STRENGTH: 100MG
     Route: 065

REACTIONS (3)
  - Wrong technique in product usage process [Unknown]
  - Insomnia [Unknown]
  - Product use in unapproved indication [Unknown]
